FAERS Safety Report 16086607 (Version 4)
Quarter: 2020Q1

REPORT INFORMATION
  Report Type: Report from Study
  Country: US (occurrence: US)
  Receive Date: 20190318
  Receipt Date: 20200113
  Transmission Date: 20200409
  Serious: No
  Sender: FDA-Public Use
  Company Number: PHEH2019US009457

PATIENT
  Sex: Male

DRUGS (1)
  1. ENTRESTO [Suspect]
     Active Substance: SACUBITRIL\VALSARTAN
     Indication: CARDIAC FAILURE CHRONIC
     Dosage: UNK UNK, BID
     Route: 048

REACTIONS (6)
  - Malaise [Recovering/Resolving]
  - Cardiac disorder [Unknown]
  - Weight decreased [Unknown]
  - Arthropathy [Unknown]
  - Concomitant disease aggravated [Unknown]
  - Cough [Unknown]
